FAERS Safety Report 16181155 (Version 1)
Quarter: 2019Q2

REPORT INFORMATION
  Report Type: Spontaneous
  Country: US (occurrence: US)
  Receive Date: 20190410
  Receipt Date: 20190410
  Transmission Date: 20190711
  Serious: Yes (Other)
  Sender: FDA-Public Use
  Company Number: US-SAOL THERAPEUTICS-2019SAO00069

PATIENT
  Age: 48 Year
  Sex: Female

DRUGS (3)
  1. LIORESAL [Suspect]
     Active Substance: BACLOFEN
     Dosage: 30 ?G, \DAY
     Route: 037
     Dates: start: 201902
  2. LIORESAL [Suspect]
     Active Substance: BACLOFEN
     Indication: MUSCLE SPASTICITY
     Dosage: 56 ?G, \DAY (PUMP LOG: 56.40 ?G/DAY)
     Route: 037
     Dates: end: 201902
  3. LIORESAL [Suspect]
     Active Substance: BACLOFEN
     Dosage: 25 ?G, \DAY
     Route: 037
     Dates: start: 201902, end: 201902

REACTIONS (16)
  - Peroneal nerve palsy [Unknown]
  - Deep vein thrombosis [Unknown]
  - Spinal fusion surgery [Recovered/Resolved]
  - Intervertebral disc protrusion [Unknown]
  - Asthenia [Unknown]
  - Hypertonia [Unknown]
  - Rotator cuff repair [Recovered/Resolved]
  - Cervical spinal stenosis [Unknown]
  - Pain [Recovered/Resolved]
  - Device failure [Recovered/Resolved]
  - Intervertebral disc operation [Recovered/Resolved]
  - Myelopathy [Unknown]
  - Muscle spasms [Unknown]
  - Muscle tightness [Recovered/Resolved]
  - Muscular weakness [Unknown]
  - Muscle spasticity [Unknown]

NARRATIVE: CASE EVENT DATE: 200906
